FAERS Safety Report 15917762 (Version 2)
Quarter: 2019Q1

REPORT INFORMATION
  Report Type: Report from Study
  Country: US (occurrence: US)
  Receive Date: 20190205
  Receipt Date: 20190305
  Transmission Date: 20190417
  Serious: Yes (Hospitalization, Other)
  Sender: FDA-Public Use
  Company Number: US-GILEAD-2019-0388458

PATIENT
  Age: 80 Year
  Sex: Female

DRUGS (3)
  1. AMBRISENTAN [Suspect]
     Active Substance: AMBRISENTAN
     Indication: PRODUCT USED FOR UNKNOWN INDICATION
     Dosage: 10 MG, QD
     Route: 065
     Dates: start: 20101229
  2. ELIQUIS [Concomitant]
     Active Substance: APIXABAN
  3. ADCIRCA [Concomitant]
     Active Substance: TADALAFIL

REACTIONS (7)
  - Pneumonia [Unknown]
  - Head injury [Unknown]
  - Dyspnoea [Unknown]
  - Pulmonary thrombosis [Unknown]
  - Fall [Unknown]
  - Cough [Unknown]
  - Loss of consciousness [Unknown]
